FAERS Safety Report 14063562 (Version 1)
Quarter: 2017Q4

REPORT INFORMATION
  Report Type: Report from Study
  Country: MX (occurrence: MX)
  Receive Date: 20171009
  Receipt Date: 20171009
  Transmission Date: 20180321
  Serious: Yes (Death, Other)
  Sender: FDA-Public Use
  Company Number: MX-ELI_LILLY_AND_COMPANY-MX201710002524

PATIENT
  Age: 63 Year
  Sex: Female

DRUGS (3)
  1. 5-FLUOROURACIL                     /00098801/ [Concomitant]
     Active Substance: FLUOROURACIL
     Indication: HEPATIC CANCER
     Dosage: 1 G, UNK
  2. CETUXIMAB. [Suspect]
     Active Substance: CETUXIMAB
     Indication: HEPATIC CANCER
     Dosage: 400 MG, WEEKLY (1/W)
     Route: 042
     Dates: start: 20170906
  3. OXALIPLATIN. [Concomitant]
     Active Substance: OXALIPLATIN
     Indication: HEPATIC CANCER
     Dosage: 180 MG, UNK

REACTIONS (4)
  - Respiratory failure [Fatal]
  - Condition aggravated [Unknown]
  - Pallor [Unknown]
  - Off label use [Unknown]

NARRATIVE: CASE EVENT DATE: 20170927
